FAERS Safety Report 11342228 (Version 2)
Quarter: 2015Q3

REPORT INFORMATION
  Report Type: Spontaneous
  Country: GB (occurrence: GB)
  Receive Date: 20150805
  Receipt Date: 20150814
  Transmission Date: 20151125
  Serious: Yes (Other)
  Sender: FDA-Public Use
  Company Number: GB-BRISTOL-MYERS SQUIBB COMPANY-BMS-2015-049176

PATIENT
  Age: 57 Year
  Sex: Male

DRUGS (17)
  1. HYDROXYUREA. [Suspect]
     Active Substance: HYDROXYUREA
     Dosage: 1 G, QD
     Route: 048
     Dates: start: 201304, end: 20141103
  2. ACITRETIN. [Suspect]
     Active Substance: ACITRETIN
     Indication: PSORIASIS
     Dosage: 20 MG, QD
     Route: 048
     Dates: start: 20060127, end: 200611
  3. ACITRETIN. [Suspect]
     Active Substance: ACITRETIN
     Dosage: 10 MG, QD
     Route: 048
     Dates: start: 201001, end: 201003
  4. CLOPIDOGREL [Concomitant]
     Active Substance: CLOPIDOGREL BISULFATE
     Indication: PRODUCT USED FOR UNKNOWN INDICATION
     Route: 065
     Dates: start: 20130501
  5. METOCLOPRAMIDE. [Concomitant]
     Active Substance: METOCLOPRAMIDE
     Indication: PRODUCT USED FOR UNKNOWN INDICATION
     Route: 065
     Dates: start: 20130501
  6. SODIUM VALPROATE [Concomitant]
     Active Substance: VALPROATE SODIUM
     Indication: PRODUCT USED FOR UNKNOWN INDICATION
     Route: 065
     Dates: start: 20130501
  7. ACITRETIN. [Suspect]
     Active Substance: ACITRETIN
     Dosage: UNK
     Route: 048
     Dates: start: 200907, end: 201001
  8. ACITRETIN. [Suspect]
     Active Substance: ACITRETIN
     Dosage: 30 MG, QD
     Route: 048
     Dates: start: 201304, end: 20141103
  9. ACITRETIN. [Suspect]
     Active Substance: ACITRETIN
     Dosage: 30 MG, QD
     Route: 048
     Dates: start: 201101, end: 2011
  10. ACITRETIN. [Suspect]
     Active Substance: ACITRETIN
     Dosage: 10 MG, QD
     Route: 048
     Dates: start: 201211, end: 201303
  11. ACITRETIN. [Suspect]
     Active Substance: ACITRETIN
     Dosage: UNK
     Route: 048
     Dates: start: 201007, end: 201101
  12. HYDROXYCARBAMIDE [Suspect]
     Active Substance: HYDROXYUREA
     Dosage: 1 G, QD
     Route: 048
     Dates: start: 201304, end: 20141103
  13. CETIRIZINE [Concomitant]
     Active Substance: CETIRIZINE HYDROCHLORIDE
     Indication: PRODUCT USED FOR UNKNOWN INDICATION
     Route: 065
     Dates: start: 20130501
  14. HYDROXYUREA. [Suspect]
     Active Substance: HYDROXYUREA
     Indication: PRODUCT USED FOR UNKNOWN INDICATION
     Route: 048
     Dates: start: 20110301, end: 201303
  15. ACITRETIN. [Suspect]
     Active Substance: ACITRETIN
     Dosage: 10 MG, QD
     Route: 048
     Dates: start: 200810, end: 200907
  16. HYDROXYCARBAMIDE [Suspect]
     Active Substance: HYDROXYUREA
     Indication: PSORIASIS
     Dosage: 500 MG, BID
     Route: 048
     Dates: start: 20110301, end: 201303
  17. ASPIRIN. [Concomitant]
     Active Substance: ASPIRIN
     Indication: PRODUCT USED FOR UNKNOWN INDICATION
     Route: 065
     Dates: start: 20130501

REACTIONS (4)
  - Eyelid oedema [Unknown]
  - Ectropion [Not Recovered/Not Resolved]
  - Dermatitis [Unknown]
  - Gait disturbance [Unknown]

NARRATIVE: CASE EVENT DATE: 20141103
